FAERS Safety Report 9422848 (Version 1)
Quarter: 2013Q3

REPORT INFORMATION
  Report Type: Spontaneous
  Country: US (occurrence: US)
  Receive Date: 20130726
  Receipt Date: 20130726
  Transmission Date: 20140515
  Serious: Yes (Hospitalization)
  Sender: FDA-Public Use
  Company Number: US-B.I. PHARMACEUTICALS,INC./RIDGEFIELD-2013-BI-21024BP

PATIENT
  Age: 87 Year
  Sex: Female
  Weight: 57 kg

DRUGS (3)
  1. COMBIVENT [Suspect]
     Indication: CHRONIC OBSTRUCTIVE PULMONARY DISEASE
     Dosage: STRENGTH: 20 MCG / 100 MCG; DAILY DOSE: 80 MCG / 400 MCG
     Route: 055
     Dates: start: 20130528, end: 20130605
  2. COMBIVENT [Suspect]
     Dosage: STRENGTH: 20 MCG / 100 MCG; DAILY DOSE: 40 MCG / 200 MCG
     Route: 055
     Dates: start: 20130606, end: 20130624
  3. COMBIVENT [Suspect]
     Indication: BRONCHITIS CHRONIC
     Dosage: STRENGTH: 18 MCG / 103 MCG;
     Route: 055
     Dates: start: 2004, end: 2009

REACTIONS (5)
  - Pneumonia [Recovered/Resolved]
  - Cough [Recovered/Resolved]
  - Dizziness [Recovered/Resolved]
  - Sinusitis [Not Recovered/Not Resolved]
  - Product quality issue [Recovered/Resolved]
